FAERS Safety Report 9971273 (Version 1)
Quarter: 2014Q1

REPORT INFORMATION
  Report Type: Spontaneous
  Country: US (occurrence: US)
  Receive Date: 20140306
  Receipt Date: 20140306
  Transmission Date: 20141002
  Serious: No
  Sender: FDA-Public Use
  Company Number: US-ABBVIE-13P-163-1149763-00

PATIENT
  Age: 55 Year
  Sex: Female
  Weight: 63.56 kg

DRUGS (11)
  1. HUMIRA [Suspect]
     Indication: RHEUMATOID ARTHRITIS
     Dates: start: 2011
  2. DEPAKOTE [Suspect]
     Indication: POST-TRAUMATIC STRESS DISORDER
     Dates: start: 20130815, end: 20130820
  3. DEPAKOTE [Suspect]
     Indication: DEPRESSION
  4. EFFEXOR [Concomitant]
     Indication: DEPRESSION
  5. TRAZODONE [Concomitant]
     Indication: INSOMNIA
  6. LISINOPRIL [Concomitant]
     Indication: HYPERTENSION
  7. AMBIEN [Concomitant]
     Indication: INSOMNIA
  8. ANTABUSE [Concomitant]
     Indication: ALCOHOLISM
  9. PLAQUENIL [Concomitant]
     Indication: RHEUMATOID ARTHRITIS
  10. IBUPROFEN [Concomitant]
     Indication: PAIN
  11. OXYCONTIN [Concomitant]
     Indication: PAIN

REACTIONS (2)
  - Injury associated with device [Recovered/Resolved]
  - Delusion [Recovered/Resolved]
